FAERS Safety Report 17858993 (Version 3)
Quarter: 2020Q2

REPORT INFORMATION
  Report Type: Spontaneous
  Country: US (occurrence: US)
  Receive Date: 20200604
  Receipt Date: 20200625
  Transmission Date: 20200714
  Serious: No
  Sender: FDA-Public Use
  Company Number: US-BIOGEN-2020BI00882734

PATIENT
  Sex: Female

DRUGS (2)
  1. TYSABRI [Suspect]
     Active Substance: NATALIZUMAB
     Indication: MULTIPLE SCLEROSIS
     Route: 042
     Dates: start: 20141217, end: 20160208
  2. TYSABRI [Suspect]
     Active Substance: NATALIZUMAB
     Route: 042
     Dates: end: 2015

REACTIONS (10)
  - Pigmentation disorder [Unknown]
  - Pain in extremity [Unknown]
  - Hyperhidrosis [Unknown]
  - Memory impairment [Unknown]
  - Back pain [Unknown]
  - Fibromyalgia [Not Recovered/Not Resolved]
  - Fall [Recovered/Resolved]
  - Depression [Unknown]
  - Pain [Unknown]
  - Eczema [Unknown]
